FAERS Safety Report 21431989 (Version 1)
Quarter: 2022Q4

REPORT INFORMATION
  Report Type: Other
  Country: NG (occurrence: None)
  Receive Date: 20221009
  Receipt Date: 20221009
  Transmission Date: 20230113
  Serious: Yes (Hospitalization)
  Sender: FDA-Public Use
  Company Number: NG-ROCHE-3195471

PATIENT
  Sex: Female
  Weight: 94 kg

DRUGS (3)
  1. PERJETA [Suspect]
     Active Substance: PERTUZUMAB
     Indication: Breast cancer stage I
     Dosage: ONGOING
     Route: 065
     Dates: start: 20220322
  2. HERCEPTIN [Suspect]
     Active Substance: TRASTUZUMAB
     Indication: Breast cancer stage I
     Dosage: ONGOING
     Route: 065
     Dates: start: 20220322
  3. AMLODIPINE [Concomitant]
     Active Substance: AMLODIPINE BESYLATE
     Indication: Hypertension
     Route: 048

REACTIONS (1)
  - Jaw disorder [Recovering/Resolving]

NARRATIVE: CASE EVENT DATE: 20220927
